FAERS Safety Report 5963525-3 (Version None)
Quarter: 2008Q4

REPORT INFORMATION
  Report Type: 
  Country: None (occurrence: None)
  Receive Date: 20081120
  Receipt Date: 20081112
  Transmission Date: 20090506
  Serious: Yes (Hospitalization)
  Sender: FDA-Public Use
  Company Number: TPA2008A02023

PATIENT
  Age: 70 Year
  Sex: Female

DRUGS (3)
  1. ACTOS [Suspect]
     Indication: TYPE 2 DIABETES MELLITUS
     Dosage: UNK, 1 IN 1 D, PER ORAL
     Route: 048
     Dates: start: 20000101, end: 20040101
  2. INSULIN (INSULIN) [Concomitant]
  3. SYNTHROID [Concomitant]

REACTIONS (5)
  - CHOLECYSTECTOMY [None]
  - DRUG INEFFECTIVE [None]
  - HYPERTENSION [None]
  - OEDEMA PERIPHERAL [None]
  - URINARY TRACT DISORDER [None]
